FAERS Safety Report 17071150 (Version 4)
Quarter: 2021Q3

REPORT INFORMATION
  Report Type: Spontaneous
  Country: US (occurrence: US)
  Receive Date: 20191125
  Receipt Date: 20210917
  Transmission Date: 20211014
  Serious: No
  Sender: FDA-Public Use
  Company Number: US-PFIZER INC-2019504785

PATIENT
  Age: 73 Year
  Sex: Male
  Weight: 98.88 kg

DRUGS (2)
  1. CAVERJECT [Suspect]
     Active Substance: ALPROSTADIL
     Indication: SPONTANEOUS PENILE ERECTION
     Dosage: 1 ML, AS NEEDED(1 ML INTRACAVERNOSAL DAILY PRN)
     Route: 017
  2. CAVERJECT [Suspect]
     Active Substance: ALPROSTADIL
     Indication: ERECTILE DYSFUNCTION
     Dosage: 1 ML DAILY AS NEEDED
     Route: 017

REACTIONS (5)
  - Nocturia [Unknown]
  - Fatigue [Unknown]
  - Off label use [Unknown]
  - Blood testosterone decreased [Unknown]
  - Libido disorder [Unknown]
